FAERS Safety Report 5761990-8 (Version None)
Quarter: 2008Q2

REPORT INFORMATION
  Report Type: 
  Country: None (occurrence: None)
  Receive Date: 20080603
  Receipt Date: 20080522
  Transmission Date: 20081010
  Serious: Yes (Other)
  Sender: FDA-Public Use
  Company Number: GXKR2008DE04712

PATIENT
  Age: 59 Year
  Sex: Female
  Weight: 129 kg

DRUGS (2)
  1. LORAZEPAM [Suspect]
     Indication: MANIA
     Dosage: 2.5 MG, ONCE/SINGLE
  2. QUETIAPINE FUMARATE [Suspect]
     Indication: MANIA
     Dosage: 100 MG, ONCE/SINGLE

REACTIONS (9)
  - ACUTE RESPIRATORY FAILURE [None]
  - CYANOSIS [None]
  - DRUG INTERACTION [None]
  - HYPOMANIA [None]
  - LOSS OF CONSCIOUSNESS [None]
  - OXYGEN SATURATION DECREASED [None]
  - SLEEP APNOEA SYNDROME [None]
  - SOMNOLENCE [None]
  - TACHYCARDIA [None]
